FAERS Safety Report 13535992 (Version 2)
Quarter: 2017Q2

REPORT INFORMATION
  Report Type: Spontaneous
  Country: US (occurrence: US)
  Receive Date: 20170511
  Receipt Date: 20170522
  Transmission Date: 20170830
  Serious: No
  Sender: FDA-Public Use
  Company Number: US-PFIZER INC-2017199985

PATIENT
  Sex: Female

DRUGS (2)
  1. METHOTREXATE SODIUM. [Suspect]
     Active Substance: METHOTREXATE SODIUM
     Dosage: UNK
  2. PLAQUENIL [Suspect]
     Active Substance: HYDROXYCHLOROQUINE SULFATE
     Dosage: UNK

REACTIONS (3)
  - Alopecia [Unknown]
  - Drug ineffective [Unknown]
  - Nausea [Unknown]
